FAERS Safety Report 11659020 (Version 2)
Quarter: 2015Q4

REPORT INFORMATION
  Report Type: Spontaneous
  Country: CN (occurrence: CN)
  Receive Date: 20151026
  Receipt Date: 20151028
  Transmission Date: 20160304
  Serious: Yes (Hospitalization)
  Sender: FDA-Public Use
  Company Number: PHHY2015CN137075

PATIENT
  Age: 65 Year
  Sex: Male

DRUGS (4)
  1. EN BI PU [Concomitant]
     Indication: CEREBRAL INFARCTION
     Dosage: 0.1 G, TID
     Route: 048
     Dates: start: 20150526, end: 20150530
  2. TEGRETOL [Suspect]
     Active Substance: CARBAMAZEPINE
     Dosage: 0.05 G, (DOSE OF TEGRETOL WAS REDUCED TO HALF)
     Route: 048
     Dates: end: 20150530
  3. TEGRETOL [Suspect]
     Active Substance: CARBAMAZEPINE
     Indication: TRIGEMINAL NEURALGIA
     Dosage: 0.1 G, TID
     Route: 048
     Dates: start: 20150526
  4. ATORVASTATIN CALCIUM. [Concomitant]
     Active Substance: ATORVASTATIN CALCIUM
     Indication: CEREBRAL INFARCTION
     Dosage: 20 MG, QD
     Route: 048
     Dates: start: 20150526, end: 20150530

REACTIONS (2)
  - Anoxia [Not Recovered/Not Resolved]
  - Seizure [Not Recovered/Not Resolved]

NARRATIVE: CASE EVENT DATE: 20150528
